FAERS Safety Report 12625056 (Version 3)
Quarter: 2016Q3

REPORT INFORMATION
  Report Type: Spontaneous
  Country: US (occurrence: US)
  Receive Date: 20160805
  Receipt Date: 20160916
  Transmission Date: 20161109
  Serious: No
  Sender: FDA-Public Use
  Company Number: US-PFIZER INC-2016362785

PATIENT
  Age: 77 Year
  Sex: Female
  Weight: 70.31 kg

DRUGS (2)
  1. CELEBREX [Suspect]
     Active Substance: CELECOXIB
     Dosage: 200 MG, DAILY
  2. CELEBREX [Suspect]
     Active Substance: CELECOXIB
     Indication: OCCIPITAL NEURALGIA
     Dosage: 200 MG, DAILY
     Route: 048
     Dates: start: 201408, end: 201410

REACTIONS (4)
  - Weight increased [Not Recovered/Not Resolved]
  - Neuralgia [Unknown]
  - Intervertebral disc protrusion [Unknown]
  - Back pain [Unknown]

NARRATIVE: CASE EVENT DATE: 201410
